FAERS Safety Report 9301109 (Version 1)
Quarter: 2013Q2

REPORT INFORMATION
  Report Type: Spontaneous
  Country: US (occurrence: US)
  Receive Date: 20130521
  Receipt Date: 20130521
  Transmission Date: 20140414
  Serious: Yes (Death)
  Sender: FDA-Public Use
  Company Number: US-GLAXOSMITHKLINE-A0788079A

PATIENT
  Age: 71 Year
  Sex: Male
  Weight: 70.5 kg

DRUGS (1)
  1. AVANDIA [Suspect]
     Indication: TYPE 2 DIABETES MELLITUS
     Dosage: 4MG PER DAY
     Route: 048
     Dates: start: 2000, end: 20070222

REACTIONS (4)
  - Cardiac valve disease [Unknown]
  - Transient ischaemic attack [Unknown]
  - Arteriosclerosis coronary artery [Fatal]
  - Injury [Unknown]
